FAERS Safety Report 10234146 (Version 1)
Quarter: 2014Q1

REPORT INFORMATION
  Report Type: Spontaneous
  Country: US (occurrence: None)
  Receive Date: 20140306
  Receipt Date: 20140306
  Transmission Date: 20141002
  Serious: Yes (Hospitalization)
  Sender: FDA-Public Use
  Company Number: 163-21880-13052928

PATIENT
  Age: 80 Year
  Sex: Male
  Weight: 67.59 kg

DRUGS (9)
  1. REVLIMID (LENALIDOMIDE) (10 MILLIGRAM, CAPSULES) [Suspect]
     Indication: PLASMA CELL MYELOMA
     Route: 048
     Dates: start: 20130405, end: 2013
  2. DEXAMETHASONE (DEXAMETHASONE) [Concomitant]
  3. ATENOLOL (ATENOLOL) (TABLETS) [Concomitant]
  4. OMEPRAZOLE (OMEPRAZOLE) [Concomitant]
  5. BENZTROPINE MESYLATE (BENZATROPINE MESILATE) [Concomitant]
  6. HALOPERIDOL (HALOPERIDOL) (TABLETS) [Concomitant]
  7. CALCIUM 600 + VIT D (CALCIUM) [Concomitant]
  8. ERGOCALCIFEROL (ERGOCALCIFEROL) [Concomitant]
  9. VELCADE (BORTEZOMIB) [Concomitant]

REACTIONS (8)
  - Pneumonia [None]
  - Platelet count decreased [None]
  - Fall [None]
  - Decreased appetite [None]
  - Weight decreased [None]
  - Full blood count decreased [None]
  - Upper respiratory tract infection [None]
  - Asthenia [None]
